FAERS Safety Report 4932097-4 (Version None)
Quarter: 2006Q1

REPORT INFORMATION
  Report Type: 
  Country: None (occurrence: None)
  Receive Date: 20060303
  Receipt Date: 20060201
  Transmission Date: 20060701
  Serious: Yes (Disabling)
  Sender: FDA-Public Use
  Company Number: DK-SANOFI-SYNTHELABO-F01200600283

PATIENT
  Sex: Female

DRUGS (2)
  1. ELOXATIN [Suspect]
     Indication: COLORECTAL CANCER
  2. XELODA [Concomitant]
     Indication: COLORECTAL CANCER
     Dosage: FOR 14 DAYS

REACTIONS (2)
  - CATATONIA [None]
  - TREMOR [None]
